FAERS Safety Report 6397605-8 (Version None)
Quarter: 2009Q4

REPORT INFORMATION
  Report Type: 
  Country: None (occurrence: None)
  Receive Date: 20091012
  Receipt Date: 20090930
  Transmission Date: 20100525
  Serious: Yes (Other)
  Sender: FDA-Public Use
  Company Number: PHHY2009JP42339

PATIENT
  Age: 37 Year
  Sex: Female

DRUGS (9)
  1. CYCLOSPORINE [Suspect]
     Indication: RENAL TRANSPLANT
     Dosage: 300 MG DAILY
     Dates: start: 20020101
  2. CYCLOSPORINE [Suspect]
     Dosage: 150 MG DAILY
     Dates: start: 20020101
  3. MYCOPHENOLATE MOFETIL [Concomitant]
     Indication: RENAL TRANSPLANT
     Dosage: 1000 MG
     Dates: start: 20020101, end: 20060101
  4. METHYLPREDNISOLONE [Concomitant]
     Indication: RENAL TRANSPLANT
     Dosage: UNK
     Dates: start: 20020101, end: 20020101
  5. SIMULECT [Concomitant]
     Indication: RENAL TRANSPLANT
     Dosage: 20 MG, UNK
     Route: 042
  6. AZATHIOPRINE [Concomitant]
  7. LANTUS [Concomitant]
     Indication: TYPE 1 DIABETES MELLITUS
  8. HUMALOG [Concomitant]
     Indication: TYPE 1 DIABETES MELLITUS
  9. NICARDIPINE HYDROCHLORIDE [Concomitant]

REACTIONS (6)
  - CAESAREAN SECTION [None]
  - DRUG EXPOSURE DURING PREGNANCY [None]
  - HYPOGLYCAEMIA UNAWARENESS [None]
  - PREGNANCY INDUCED HYPERTENSION [None]
  - PYELONEPHRITIS [None]
  - VITREOUS HAEMORRHAGE [None]
